FAERS Safety Report 5395305-4 (Version None)
Quarter: 2007Q3

REPORT INFORMATION
  Report Type: 
  Country: None (occurrence: None)
  Receive Date: 20070724
  Receipt Date: 20070719
  Transmission Date: 20080115
  Serious: Yes (Death, Hospitalization, Other)
  Sender: FDA-Public Use
  Company Number: US-ASTRAZENECA-2007UW17176

PATIENT
  Age: 58 Year
  Sex: Male

DRUGS (4)
  1. CRESTOR [Suspect]
     Route: 048
  2. PLAVIX [Suspect]
     Route: 048
  3. BENICAR [Suspect]
     Route: 048
  4. INSULIN [Concomitant]

REACTIONS (4)
  - HEPATIC FAILURE [None]
  - HEPATITIS CHOLESTATIC [None]
  - METABOLIC ACIDOSIS [None]
  - RENAL FAILURE [None]
